FAERS Safety Report 25047425 (Version 1)
Quarter: 2025Q1

REPORT INFORMATION
  Report Type: Spontaneous
  Country: CA (occurrence: CA)
  Receive Date: 20250306
  Receipt Date: 20250306
  Transmission Date: 20250408
  Serious: Yes (Life-Threatening, Hospitalization, Other)
  Sender: SANOFI AVENTIS
  Company Number: CA-SA-2025SA066096

PATIENT
  Age: 5 Year
  Sex: Male
  Weight: 18 kg

DRUGS (28)
  1. LEMTRADA [Suspect]
     Active Substance: ALEMTUZUMAB
     Indication: Hodgkin^s disease
     Route: 042
  2. BUSULFAN [Suspect]
     Active Substance: BUSULFAN
     Indication: Hodgkin^s disease
     Dosage: 90 MG, QD
     Route: 042
  3. FLUDARABINE [Suspect]
     Active Substance: FLUDARABINE PHOSPHATE
     Indication: Hodgkin^s disease
     Route: 042
  4. ACYCLOVIR [Concomitant]
     Active Substance: ACYCLOVIR
  5. AMLODIPINE [Concomitant]
     Active Substance: AMLODIPINE BESYLATE
  6. BETAMETHASONE [Concomitant]
     Active Substance: BETAMETHASONE
     Route: 061
  7. CEFTAZIDIME [Concomitant]
     Active Substance: CEFTAZIDIME
  8. CETIRIZINE [Concomitant]
     Active Substance: CETIRIZINE HYDROCHLORIDE
  9. FLUCONAZOLE [Concomitant]
     Active Substance: FLUCONAZOLE
  10. FUROSEMIDE [Concomitant]
     Active Substance: FUROSEMIDE
  11. GRANISETRON [Concomitant]
     Active Substance: GRANISETRON
  12. GRANULOCYTE COLONY-STIMULATING FACTOR NOS [Concomitant]
     Active Substance: GRANULOCYTE COLONY-STIMULATING FACTOR NOS
  13. HYDROXYZINE [Concomitant]
     Active Substance: HYDROXYZINE HYDROCHLORIDE
  14. LEVETIRACETAM [Concomitant]
     Active Substance: LEVETIRACETAM
  15. LORAZEPAM [Concomitant]
     Active Substance: LORAZEPAM
  16. MAGNESIUM [Concomitant]
     Active Substance: MAGNESIUM
  17. MELATONIN [Concomitant]
     Active Substance: MELATONIN
  18. MYCAMINE [Concomitant]
     Active Substance: MICAFUNGIN SODIUM
     Route: 042
  19. MYCOPHENOLATE MOFETIL [Concomitant]
     Active Substance: MYCOPHENOLATE MOFETIL
  20. OLANZAPINE [Concomitant]
     Active Substance: OLANZAPINE
  21. ONDANSETRON [Concomitant]
     Active Substance: ONDANSETRON
  22. PIPERACILLIN SODIUM\TAZOBACTAM SODIUM [Concomitant]
     Active Substance: PIPERACILLIN SODIUM\TAZOBACTAM SODIUM
  23. POLYETHYLENE GLYCOLS [Concomitant]
     Active Substance: POLYETHYLENE GLYCOLS
  24. SIROLIMUS [Concomitant]
     Active Substance: SIROLIMUS
  25. TACROLIMUS [Concomitant]
     Active Substance: TACROLIMUS
  26. TRANEXAMIC ACID [Concomitant]
     Active Substance: TRANEXAMIC ACID
  27. URSODIOL [Concomitant]
     Active Substance: URSODIOL
  28. VANCOMYCIN [Concomitant]
     Active Substance: VANCOMYCIN

REACTIONS (2)
  - Mucosal inflammation [Recovered/Resolved]
  - Aplastic anaemia [Recovered/Resolved]
